FAERS Safety Report 5500217-9 (Version None)
Quarter: 2007Q4

REPORT INFORMATION
  Report Type: 
  Country: None (occurrence: None)
  Receive Date: 20071025
  Receipt Date: 20071015
  Transmission Date: 20080405
  Serious: Yes (Other)
  Sender: FDA-Public Use
  Company Number: 07-427

PATIENT
  Age: 67 Year
  Sex: Female
  Weight: 97.5234 kg

DRUGS (6)
  1. ALEVE [Suspect]
     Indication: BACK PAIN
     Dosage: 220 MG, DIALY, ORAL
     Route: 048
     Dates: start: 20070901
  2. SYNTHROID [Concomitant]
  3. GLIPIZIDE [Concomitant]
  4. ATENOLOL [Concomitant]
  5. METFORMIN [Concomitant]
  6. VITAMIN E [Concomitant]

REACTIONS (1)
  - HALLUCINATION, AUDITORY [None]
